FAERS Safety Report 10249942 (Version 1)
Quarter: 2014Q2

REPORT INFORMATION
  Report Type: Spontaneous
  Country: US (occurrence: None)
  Receive Date: 20140618
  Receipt Date: 20140618
  Transmission Date: 20141212
  Serious: Yes (Disabling)
  Sender: FDA-Public Use
  Company Number: None

PATIENT
  Age: 20 Year
  Sex: Male
  Weight: 99.79 kg

DRUGS (2)
  1. PROSCAR [Suspect]
     Indication: ALOPECIA
     Dosage: ABOUT 1 MONTH, 1MG, ONCE DAILY, TAKEN BY MOUTH
     Route: 048
  2. PROPECIA [Suspect]

REACTIONS (3)
  - Erectile dysfunction [None]
  - Blood testosterone decreased [None]
  - Anxiety [None]
